FAERS Safety Report 7349175-5 (Version None)
Quarter: 2011Q1

REPORT INFORMATION
  Report Type: 
  Country: None (occurrence: None)
  Receive Date: 20110304
  Receipt Date: 20110228
  Transmission Date: 20110831
  Serious: Yes (Life-Threatening, Other)
  Sender: FDA-Public Use
  Company Number: 20108926

PATIENT
  Age: 17 Year
  Sex: Male

DRUGS (2)
  1. LAMICTAL [Concomitant]
  2. GABALON INTRATHECAL (BACLOFEN INJECTION) [Suspect]
     Indication: MUSCLE SPASTICITY
     Dosage: 240 MCG, DAILY, INTRATHECAL
     Route: 037

REACTIONS (3)
  - PANCREATITIS ACUTE [None]
  - DISSEMINATED INTRAVASCULAR COAGULATION [None]
  - MULTI-ORGAN FAILURE [None]
